FAERS Safety Report 6578641-5 (Version None)
Quarter: 2010Q1

REPORT INFORMATION
  Report Type: 
  Country: None (occurrence: None)
  Receive Date: 20100211
  Receipt Date: 20100205
  Transmission Date: 20100710
  Serious: Yes (Other)
  Sender: FDA-Public Use
  Company Number: US-ALLERGAN-1001539US

PATIENT
  Sex: Female

DRUGS (2)
  1. ACUVAIL [Suspect]
     Indication: DRUG USE FOR UNKNOWN INDICATION
     Dosage: UNK
     Route: 047
     Dates: end: 20091231
  2. PRED FORTE [Concomitant]

REACTIONS (2)
  - CORNEAL DISORDER [None]
  - EYE IRRITATION [None]
